FAERS Safety Report 24259653 (Version 1)
Quarter: 2024Q3

REPORT INFORMATION
  Report Type: Spontaneous
  Country: RU (occurrence: RU)
  Receive Date: 20240828
  Receipt Date: 20240828
  Transmission Date: 20241016
  Serious: Yes (Death)
  Sender: ALEXION PHARMACEUTICALS
  Company Number: RU-ALXN-202408RUS001680RU

PATIENT
  Sex: Female

DRUGS (1)
  1. KANUMA [Suspect]
     Active Substance: SEBELIPASE ALFA
     Indication: Lysosomal acid lipase deficiency
     Dosage: UNK
     Route: 041

REACTIONS (1)
  - Road traffic accident [Fatal]
